FAERS Safety Report 9916752 (Version 1)
Quarter: 2014Q1

REPORT INFORMATION
  Report Type: Spontaneous
  Country: KR (occurrence: KR)
  Receive Date: 20140221
  Receipt Date: 20140221
  Transmission Date: 20141002
  Serious: Yes (Other)
  Sender: FDA-Public Use
  Company Number: KR-UCBSA-112507

PATIENT
  Age: 24 Month
  Sex: Male

DRUGS (1)
  1. XYZAL [Suspect]
     Dosage: 100 ML
     Route: 048
     Dates: start: 20140205, end: 20140205

REACTIONS (2)
  - Dizziness [Recovered/Resolved]
  - Overdose [Recovered/Resolved]
